FAERS Safety Report 6493354-6 (Version None)
Quarter: 2009Q4

REPORT INFORMATION
  Report Type: 
  Country: None (occurrence: None)
  Receive Date: 20091209
  Receipt Date: 20091123
  Transmission Date: 20100525
  Serious: Yes (Death, Hospitalization)
  Sender: FDA-Public Use
  Company Number: DSA_42136_2009

PATIENT
  Age: 16 Month
  Sex: Male

DRUGS (1)
  1. BUPROPION HYDROCHLORIDE [Suspect]
     Indication: DRUG USE FOR UNKNOWN INDICATION
     Dosage: 143 MG/KG

REACTIONS (4)
  - CARDIAC ARREST [None]
  - CONVULSION [None]
  - OVERDOSE [None]
  - VENTRICULAR FIBRILLATION [None]
